FAERS Safety Report 11230544 (Version 1)
Quarter: 2015Q2

REPORT INFORMATION
  Report Type: Spontaneous
  Country: US (occurrence: None)
  Receive Date: 20150629
  Receipt Date: 20150629
  Transmission Date: 20150821
  Serious: Yes (Hospitalization, Other)
  Sender: FDA-Public Use
  Company Number: DEP_03087_2015

PATIENT
  Sex: Female
  Weight: 73 kg

DRUGS (8)
  1. NUCYNTA ER [Suspect]
     Active Substance: TAPENTADOL HYDROCHLORIDE
     Indication: PAIN
     Route: 048
  2. NUCYNTA [Suspect]
     Active Substance: TAPENTADOL HYDROCHLORIDE
     Indication: PAIN
     Route: 048
  3. COZAAR [Concomitant]
     Active Substance: LOSARTAN POTASSIUM
  4. SIMVASTATIN. [Suspect]
     Active Substance: SIMVASTATIN
     Indication: BLOOD CHOLESTEROL
     Dosage: DF
  5. TYLENOL [Concomitant]
     Active Substance: ACETAMINOPHEN
  6. LYRICA [Suspect]
     Active Substance: PREGABALIN
     Indication: FIBROMYALGIA
  7. CELEBREX [Suspect]
     Active Substance: CELECOXIB
     Indication: INFLAMMATION
     Dates: start: 1990
  8. BABY ASPIRIN [Concomitant]
     Active Substance: ASPIRIN

REACTIONS (11)
  - Thinking abnormal [None]
  - Musculoskeletal pain [None]
  - Back pain [None]
  - Cerebrovascular accident [None]
  - Blood pressure diastolic decreased [None]
  - Coronary artery occlusion [None]
  - Neck pain [None]
  - Blood pressure increased [None]
  - Incorrect dose administered [None]
  - Myocardial infarction [None]
  - Memory impairment [None]

NARRATIVE: CASE EVENT DATE: 2000
